FAERS Safety Report 5210716-5 (Version None)
Quarter: 2007Q1

REPORT INFORMATION
  Report Type: 
  Country: None (occurrence: None)
  Receive Date: 20070116
  Receipt Date: 20070116
  Transmission Date: 20070707
  Serious: No
  Sender: FDA-Public Use
  Company Number: None

PATIENT
  Age: 46 Year
  Sex: Female
  Weight: 53.0709 kg

DRUGS (2)
  1. SERTRALINE HCL [Suspect]
     Indication: ANXIETY
     Dosage: 125MG ONCE A DAY PO
     Route: 048
     Dates: start: 20070105, end: 20070111
  2. SERTRALINE HCL [Suspect]
     Indication: MAJOR DEPRESSION
     Dosage: 125MG ONCE A DAY PO
     Route: 048
     Dates: start: 20070105, end: 20070111

REACTIONS (4)
  - BURNING SENSATION [None]
  - MAJOR DEPRESSION [None]
  - STOMATITIS [None]
  - THERAPEUTIC RESPONSE UNEXPECTED WITH DRUG SUBSTITUTION [None]
